FAERS Safety Report 15861112 (Version 1)
Quarter: 2019Q1

REPORT INFORMATION
  Report Type: Spontaneous
  Country: US (occurrence: US)
  Receive Date: 20190124
  Receipt Date: 20190124
  Transmission Date: 20190417
  Serious: No
  Sender: FDA-Public Use
  Company Number: US-ORPHAN EUROPE-2061680

PATIENT
  Age: 7 Year
  Sex: Male
  Weight: 17.7 kg

DRUGS (1)
  1. CYSTADANE [Suspect]
     Active Substance: BETAINE
     Indication: PRODUCT USED FOR UNKNOWN INDICATION
     Route: 048
     Dates: start: 20150513

REACTIONS (1)
  - Nasal pruritus [Unknown]

NARRATIVE: CASE EVENT DATE: 20180718
